APPROVED DRUG PRODUCT: ARMODAFINIL
Active Ingredient: ARMODAFINIL
Strength: 100MG
Dosage Form/Route: TABLET;ORAL
Application: A200156 | Product #002
Applicant: WATSON LABORATORIES INC
Approved: Aug 29, 2012 | RLD: No | RS: No | Type: DISCN